FAERS Safety Report 21797705 (Version 1)
Quarter: 2022Q4

REPORT INFORMATION
  Report Type: Report from Study
  Country: US (occurrence: US)
  Receive Date: 20221230
  Receipt Date: 20221230
  Transmission Date: 20230113
  Serious: No
  Sender: FDA-Public Use
  Company Number: US-ABBVIE-4207545

PATIENT
  Age: 47 Year
  Sex: Female

DRUGS (13)
  1. RINVOQ [Suspect]
     Active Substance: UPADACITINIB
     Indication: Rheumatoid arthritis
     Route: 048
     Dates: start: 20221010
  2. TRAMADOL HCL 50 MG TABLET [Concomitant]
     Indication: Product used for unknown indication
  3. FLUAD QUAD 2022-2023 [Concomitant]
     Indication: Product used for unknown indication
  4. OZEMPIC 0.25 OR .5 PEN INJCTIR [Concomitant]
     Indication: Product used for unknown indication
  5. TRIAMTERENE AND HYDROCHLOROTHIAZIDE [Concomitant]
     Active Substance: HYDROCHLOROTHIAZIDE\TRIAMTERENE
     Indication: Product used for unknown indication
  6. PROTONIX 40 MG TABLET DR [Concomitant]
     Indication: Product used for unknown indication
  7. CYMBALTA 60 MG CAPSULE DR [Concomitant]
     Indication: Product used for unknown indication
  8. METFORMIN ER GASTRIC [Concomitant]
     Indication: Product used for unknown indication
  9. SULFASALAZINE 500 MG TABLET [Concomitant]
     Indication: Product used for unknown indication
  10. GABAPENTIN [Concomitant]
     Active Substance: GABAPENTIN
     Indication: Product used for unknown indication
  11. AMLODIPINE BESYLATE [Concomitant]
     Active Substance: AMLODIPINE BESYLATE
     Indication: Product used for unknown indication
  12. VITAMIN D3 1250 MCG CAPSULE [Concomitant]
     Indication: Product used for unknown indication
  13. SINGULAR 10 MG TABLET [Concomitant]
     Indication: Product used for unknown indication

REACTIONS (1)
  - Pain [Not Recovered/Not Resolved]

NARRATIVE: CASE EVENT DATE: 20221101
